FAERS Safety Report 5376070-3 (Version None)
Quarter: 2007Q3

REPORT INFORMATION
  Report Type: 
  Country: None (occurrence: None)
  Receive Date: 20070702
  Receipt Date: 20070621
  Transmission Date: 20080115
  Serious: Yes (Hospitalization)
  Sender: FDA-Public Use
  Company Number: HQWYE607114JUN07

PATIENT
  Sex: Male
  Weight: 10.9 kg

DRUGS (2)
  1. EFFEXOR XR [Suspect]
     Dosage: OVERDOSE AMOUNT  ^LESS THAN ONE CAPSULE ONCE^; 150 MG
     Route: 048
     Dates: start: 20070604, end: 20070604
  2. FEXOFENADINE HYDROCHLORIDE [Concomitant]
     Indication: SEASONAL ALLERGY
     Dosage: 30 MG QD PRN
     Route: 048

REACTIONS (5)
  - ACCIDENTAL DRUG INTAKE BY CHILD [None]
  - ACCIDENTAL OVERDOSE [None]
  - BLOOD PRESSURE INCREASED [None]
  - FAILURE OF CHILD RESISTANT MECHANISM FOR PHARMACEUTICAL PRODUCT [None]
  - INSOMNIA [None]
